FAERS Safety Report 4733214-1 (Version None)
Quarter: 2005Q3

REPORT INFORMATION
  Report Type: 
  Country: None (occurrence: None)
  Receive Date: 20050803
  Receipt Date: 20050722
  Transmission Date: 20060218
  Serious: Yes (Other)
  Sender: FDA-Public Use
  Company Number: GB-SANOFI-SYNTHELABO-A01200505068

PATIENT
  Age: 44 Year
  Sex: Male

DRUGS (6)
  1. ELOXATIN [Suspect]
     Indication: COLON CANCER
     Route: 042
     Dates: start: 20050706, end: 20050706
  2. DEXAMETHASONE [Concomitant]
     Indication: ANOREXIA
     Dosage: 2 MG
     Route: 065
     Dates: start: 20050524
  3. LOSEC [Concomitant]
     Indication: DYSPEPSIA
     Dosage: 10 MG
     Route: 065
     Dates: start: 20050201
  4. CYCLIZINE [Concomitant]
     Indication: NAUSEA
     Route: 065
     Dates: start: 20050501
  5. MORPHINE [Concomitant]
     Indication: PAIN
     Route: 065
     Dates: start: 20050501
  6. DOMPERIDONE [Concomitant]
     Indication: NAUSEA
     Route: 065
     Dates: start: 20050601

REACTIONS (5)
  - DYSPHAGIA [None]
  - DYSPHONIA [None]
  - DYSPNOEA [None]
  - FACIAL PALSY [None]
  - LARYNGOSPASM [None]
